FAERS Safety Report 4506769-X (Version None)
Quarter: 2004Q4

REPORT INFORMATION
  Report Type: 
  Country: None (occurrence: None)
  Receive Date: 20041122
  Receipt Date: 20041105
  Transmission Date: 20050328
  Serious: Yes (Death)
  Sender: FDA-Public Use
  Company Number: US-ROCHE-385817

PATIENT
  Age: 66 Year
  Sex: Female

DRUGS (3)
  1. TORADOL [Suspect]
     Indication: DRUG USE FOR UNKNOWN INDICATION
     Dosage: MANUFACTURER UNKNOWN.
     Route: 042
     Dates: start: 19971102, end: 19971102
  2. ASPIRIN [Concomitant]
     Dates: end: 19970615
  3. HEPARIN [Concomitant]

REACTIONS (4)
  - DISSEMINATED INTRAVASCULAR COAGULATION [None]
  - GASTROINTESTINAL HAEMORRHAGE [None]
  - RENAL FAILURE [None]
  - WHITE CLOT SYNDROME [None]
